FAERS Safety Report 12459268 (Version 1)
Quarter: 2016Q2

REPORT INFORMATION
  Report Type: Spontaneous
  Country: US (occurrence: None)
  Receive Date: 20160610
  Receipt Date: 20160610
  Transmission Date: 20160815
  Serious: Yes (Other)
  Sender: FDA-Public Use
  Company Number: None

PATIENT
  Age: 53 Year
  Sex: Female
  Weight: 106.14 kg

DRUGS (2)
  1. LIDOCAINE PATCH [Suspect]
     Active Substance: LIDOCAINE
     Indication: BREAST CANCER METASTATIC
     Dosage: 2 PATCHES ON STERNUM AND SPINE TOPICALLY?
     Route: 061
     Dates: start: 20151014, end: 20160607
  2. LIDOCAINE PATCH [Suspect]
     Active Substance: LIDOCAINE
     Indication: SPINAL COLUMN STENOSIS
     Dosage: 2 PATCHES ON STERNUM AND SPINE TOPICALLY?
     Route: 061
     Dates: start: 20151014, end: 20160607

REACTIONS (2)
  - No therapeutic response [None]
  - Product adhesion issue [None]

NARRATIVE: CASE EVENT DATE: 20160527
